FAERS Safety Report 17746668 (Version 4)
Quarter: 2020Q3

REPORT INFORMATION
  Report Type: Report from Study
  Country: US (occurrence: US)
  Receive Date: 20200505
  Receipt Date: 20200902
  Transmission Date: 20201102
  Serious: Yes (Hospitalization)
  Sender: FDA-Public Use
  Company Number: US-EISAI MEDICAL RESEARCH-EC-2019-064885

PATIENT
  Age: 74 Year
  Sex: Female
  Weight: 57 kg

DRUGS (31)
  1. POTASSIUM [Concomitant]
     Active Substance: POTASSIUM
  2. LENVIMA [Suspect]
     Active Substance: LENVATINIB
     Route: 048
     Dates: start: 202001, end: 2020
  3. AUGMENTIN [Concomitant]
     Active Substance: AMOXICILLIN\CLAVULANATE POTASSIUM
  4. SYNTHROID [Concomitant]
     Active Substance: LEVOTHYROXINE SODIUM
  5. VITAMIN B12 [Concomitant]
     Active Substance: CYANOCOBALAMIN
  6. CITRACAL WITH VITAMIN D [Concomitant]
  7. LENVIMA [Suspect]
     Active Substance: LENVATINIB
     Indication: ENDOMETRIAL CANCER
     Route: 048
     Dates: start: 20191028, end: 201912
  8. LENVIMA [Suspect]
     Active Substance: LENVATINIB
     Route: 048
     Dates: start: 20200318, end: 20200421
  9. ASPIRIN. [Concomitant]
     Active Substance: ASPIRIN
  10. LORAZEPAM. [Concomitant]
     Active Substance: LORAZEPAM
  11. FUROSEMIDE. [Concomitant]
     Active Substance: FUROSEMIDE
  12. METHYLPREDNISOLONE. [Concomitant]
     Active Substance: METHYLPREDNISOLONE
  13. SIMVASTATIN. [Concomitant]
     Active Substance: SIMVASTATIN
  14. VITAMIN B6 [Concomitant]
     Active Substance: PYRIDOXINE HYDROCHLORIDE
  15. ZYRTEC [Concomitant]
     Active Substance: CETIRIZINE HYDROCHLORIDE
  16. LENVIMA [Suspect]
     Active Substance: LENVATINIB
     Route: 048
     Dates: start: 201912, end: 202001
  17. LENVIMA [Suspect]
     Active Substance: LENVATINIB
     Route: 048
     Dates: start: 2020, end: 202006
  18. KEYTRUDA [Suspect]
     Active Substance: PEMBROLIZUMAB
     Dosage: FREQUENCY AND DOSE UNKNOWN
     Route: 041
     Dates: start: 201912
  19. LISINOPRIL. [Concomitant]
     Active Substance: LISINOPRIL
  20. LENVIMA [Suspect]
     Active Substance: LENVATINIB
     Route: 048
     Dates: start: 2020, end: 202008
  21. HCTZ [Suspect]
     Active Substance: HYDROCHLOROTHIAZIDE
     Indication: PRODUCT USED FOR UNKNOWN INDICATION
     Dosage: DOSE AND FREQUENCY UNKNOWN
     Route: 065
     Dates: end: 202003
  22. AMLODIPINE [Suspect]
     Active Substance: AMLODIPINE BESYLATE
     Indication: HYPERTENSION
     Dosage: UNKNOWN DOSE AND FREQUENCY
  23. MULTIVITAMIN [Concomitant]
     Active Substance: VITAMINS
  24. CRANBERRY. [Concomitant]
     Active Substance: CRANBERRY
  25. GARLIC. [Concomitant]
     Active Substance: GARLIC
  26. LEVOTHYROXINE. [Concomitant]
     Active Substance: LEVOTHYROXINE
  27. AMOXICILLIN. [Concomitant]
     Active Substance: AMOXICILLIN
  28. KEYTRUDA [Suspect]
     Active Substance: PEMBROLIZUMAB
     Indication: PRODUCT USED FOR UNKNOWN INDICATION
     Dosage: FREQUENCY AND DOSE UNKNOWN, ON HOLD FOR WEEK
     Route: 041
     Dates: end: 201912
  29. LETROZOLE. [Concomitant]
     Active Substance: LETROZOLE
  30. LISINOPRIL?HCTZ [Concomitant]
     Active Substance: HYDROCHLOROTHIAZIDE\LISINOPRIL
  31. ONDANSETRON [Concomitant]
     Active Substance: ONDANSETRON

REACTIONS (13)
  - Rhinorrhoea [Unknown]
  - Hypertension [Unknown]
  - Platelet count decreased [Unknown]
  - Oedema peripheral [Unknown]
  - Cough [Unknown]
  - Fall [Unknown]
  - Nausea [Unknown]
  - Gait disturbance [Unknown]
  - Neuropathy peripheral [Unknown]
  - Laboratory test abnormal [Unknown]
  - Blood potassium decreased [Unknown]
  - Cerebrovascular accident [Unknown]
  - Oedema peripheral [Unknown]

NARRATIVE: CASE EVENT DATE: 20191029
